FAERS Safety Report 9266844 (Version 2)
Quarter: 2013Q2

REPORT INFORMATION
  Report Type: Spontaneous
  Country: KR (occurrence: KR)
  Receive Date: 20130502
  Receipt Date: 20130531
  Transmission Date: 20140414
  Serious: Yes (Hospitalization)
  Sender: FDA-Public Use
  Company Number: KR-JNJFOC-20130414280

PATIENT
  Age: 5 Month
  Sex: Female
  Weight: 8 kg

DRUGS (1)
  1. CHILDREN^S TYLENOL [Suspect]
     Indication: PYREXIA
     Route: 048
     Dates: start: 20130306, end: 20130306

REACTIONS (4)
  - Hepatic enzyme increased [Recovered/Resolved]
  - Pneumonia [Recovered/Resolved]
  - Drug ineffective [Unknown]
  - Product quality issue [Unknown]
